FAERS Safety Report 4760343-9 (Version None)
Quarter: 2005Q3

REPORT INFORMATION
  Report Type: 
  Country: None (occurrence: None)
  Receive Date: 20050831
  Receipt Date: 20050811
  Transmission Date: 20060218
  Serious: Yes (Other)
  Sender: FDA-Public Use
  Company Number: CA_050808592

PATIENT
  Age: 62 Year
  Sex: Female

DRUGS (1)
  1. XIGRIS [Suspect]
     Indication: SEPTIC SHOCK
     Dosage: 24 UG/KG/HR
     Dates: start: 20050810

REACTIONS (4)
  - LUNG DISORDER [None]
  - LUNG INFECTION [None]
  - PULMONARY FUNCTION TEST DECREASED [None]
  - PULMONARY OEDEMA [None]
